FAERS Safety Report 8100078-8 (Version None)
Quarter: 2012Q1

REPORT INFORMATION
  Report Type: 
  Country: None (occurrence: None)
  Receive Date: 20120129
  Receipt Date: 20111102
  Transmission Date: 20120608
  Serious: No
  Sender: FDA-Public Use
  Company Number: US-ABBOTT-11P-163-0870999-00

PATIENT
  Sex: Female
  Weight: 63.56 kg

DRUGS (4)
  1. METHOTREXATE [Concomitant]
     Indication: RHEUMATOID ARTHRITIS
     Route: 048
  2. HUMIRA [Suspect]
     Route: 058
  3. DOLOBID [Concomitant]
     Indication: INFLAMMATION
  4. HUMIRA [Suspect]
     Indication: RHEUMATOID ARTHRITIS
     Route: 058
     Dates: start: 20090101, end: 20100101

REACTIONS (2)
  - LIMB DISCOMFORT [None]
  - EYE INFLAMMATION [None]
